FAERS Safety Report 6920208-0 (Version None)
Quarter: 2010Q3

REPORT INFORMATION
  Report Type: 
  Country: None (occurrence: None)
  Receive Date: 20100809
  Receipt Date: 20100720
  Transmission Date: 20110219
  Serious: Yes (Other)
  Sender: FDA-Public Use
  Company Number: FKO201000293

PATIENT
  Age: 56 Year
  Sex: Female

DRUGS (2)
  1. PACLITAXEL [Suspect]
     Indication: OVARIAN EPITHELIAL CANCER STAGE III
     Dosage: (175 MG/M2,OVER 6-8 HOURS: REPEATED EVERY 3 WEEKS)
  2. CARBOPLATIN [Concomitant]

REACTIONS (4)
  - HYPOAESTHESIA [None]
  - NEUROPATHY PERIPHERAL [None]
  - PARAESTHESIA [None]
  - VIITH NERVE PARALYSIS [None]
